FAERS Safety Report 5763833-5 (Version None)
Quarter: 2008Q2

REPORT INFORMATION
  Report Type: 
  Country: None (occurrence: None)
  Receive Date: 20080602
  Receipt Date: 20080218
  Transmission Date: 20081010
  Serious: Yes (Other)
  Sender: FDA-Public Use
  Company Number: PHEH2008US01683

PATIENT
  Age: 70 Year
  Sex: Female
  Weight: 70.3 kg

DRUGS (4)
  1. TEKTURNA [Suspect]
     Indication: HYPERTENSION
     Dosage: 150 MG, ONCE/SINGLE, ORAL
     Route: 048
     Dates: start: 20070829, end: 20070901
  2. BENICAR [Concomitant]
  3. NEXIUM [Concomitant]
  4. NADOLOL [Concomitant]

REACTIONS (7)
  - ANGIOEDEMA [None]
  - GENERALISED OEDEMA [None]
  - HYPOAESTHESIA [None]
  - LIP SWELLING [None]
  - PARAESTHESIA [None]
  - SWOLLEN TONGUE [None]
  - URTICARIA [None]
